FAERS Safety Report 8251814-1 (Version None)
Quarter: 2012Q1

REPORT INFORMATION
  Report Type: 
  Country: None (occurrence: None)
  Receive Date: 20120321
  Receipt Date: 20101004
  Transmission Date: 20120608
  Serious: Yes (Life-Threatening)
  Sender: FDA-Public Use
  Company Number: PHHY2010US66399

PATIENT

DRUGS (1)
  1. VALTURNA [Suspect]
     Dosage: , ORAL
     Route: 048

REACTIONS (1)
  - ANGIOEDEMA [None]
